FAERS Safety Report 7652608-8 (Version None)
Quarter: 2011Q3

REPORT INFORMATION
  Report Type: 
  Country: None (occurrence: None)
  Receive Date: 20110803
  Receipt Date: 20110727
  Transmission Date: 20111222
  Serious: Yes (Death, Hospitalization, Other)
  Sender: FDA-Public Use
  Company Number: US-BAYER-2011-065378

PATIENT
  Age: 51 Year
  Sex: Female

DRUGS (2)
  1. BETASERON [Suspect]
     Indication: MULTIPLE SCLEROSIS
  2. COPAXONE [Concomitant]

REACTIONS (3)
  - ASPIRATION [None]
  - MULTIPLE SCLEROSIS [None]
  - PNEUMONIA [None]
